FAERS Safety Report 10765286 (Version 1)
Quarter: 2015Q1

REPORT INFORMATION
  Report Type: Spontaneous
  Country: US (occurrence: None)
  Receive Date: 20150204
  Receipt Date: 20150204
  Transmission Date: 20150721
  Serious: No
  Sender: FDA-Public Use
  Company Number: None

PATIENT
  Age: 45 Year
  Sex: Female
  Weight: 111.13 kg

DRUGS (2)
  1. CLONAZEPAM 1MG [Suspect]
     Active Substance: CLONAZEPAM
     Indication: ANXIETY
     Dosage: 1 TAB
     Route: 048
     Dates: start: 20150123, end: 20150129
  2. CLONAZEPAM 1MG [Suspect]
     Active Substance: CLONAZEPAM
     Indication: POST-TRAUMATIC STRESS DISORDER
     Dosage: 1 TAB
     Route: 048
     Dates: start: 20150123, end: 20150129

REACTIONS (6)
  - Dizziness [None]
  - Product substitution issue [None]
  - Therapy cessation [None]
  - Nausea [None]
  - Seizure [None]
  - Product quality issue [None]

NARRATIVE: CASE EVENT DATE: 20150123
